FAERS Safety Report 19074793 (Version 1)
Quarter: 2021Q1

REPORT INFORMATION
  Report Type: Spontaneous
  Country: AT (occurrence: AT)
  Receive Date: 20210330
  Receipt Date: 20210330
  Transmission Date: 20210420
  Serious: Yes (Other)
  Sender: FDA-Public Use
  Company Number: AT-JNJFOC-20210356515

PATIENT
  Age: 57 Year
  Sex: Male

DRUGS (18)
  1. SEROQUEL XR [Suspect]
     Active Substance: QUETIAPINE FUMARATE
     Indication: PRODUCT USED FOR UNKNOWN INDICATION
     Route: 065
     Dates: start: 20201102, end: 20201122
  2. TEMESTA [LORAZEPAM] [Concomitant]
     Active Substance: LORAZEPAM
     Dates: start: 20201204, end: 20201214
  3. TEMESTA [LORAZEPAM] [Concomitant]
     Active Substance: LORAZEPAM
     Dates: start: 20201202, end: 20201203
  4. TEMESTA [LORAZEPAM] [Concomitant]
     Active Substance: LORAZEPAM
     Dates: start: 20201102, end: 20201103
  5. LAMOTRIGIN [Concomitant]
     Active Substance: LAMOTRIGINE
     Dates: start: 20201210
  6. LAMOTRIGIN [Concomitant]
     Active Substance: LAMOTRIGINE
     Dates: start: 20201114, end: 20201124
  7. TEMESTA [LORAZEPAM] [Concomitant]
     Active Substance: LORAZEPAM
     Dates: start: 20201104, end: 20201105
  8. TEMESTA [LORAZEPAM] [Concomitant]
     Active Substance: LORAZEPAM
     Dates: start: 20201112, end: 20201201
  9. TEMESTA [LORAZEPAM] [Concomitant]
     Active Substance: LORAZEPAM
     Dates: start: 20201111, end: 20201111
  10. VENLAFAXIN [Suspect]
     Active Substance: VENLAFAXINE HYDROCHLORIDE
     Indication: PRODUCT USED FOR UNKNOWN INDICATION
     Route: 065
     Dates: start: 20201106, end: 20201107
  11. TEMESTA [LORAZEPAM] [Concomitant]
     Active Substance: LORAZEPAM
     Dates: start: 20201106, end: 20201110
  12. RISPERDAL [Suspect]
     Active Substance: RISPERIDONE
     Indication: PRODUCT USED FOR UNKNOWN INDICATION
     Route: 065
     Dates: start: 20201106, end: 20201106
  13. VENLAFAXIN [Suspect]
     Active Substance: VENLAFAXINE HYDROCHLORIDE
     Route: 065
     Dates: start: 20201108, end: 20201112
  14. LAMOTRIGIN [Concomitant]
     Active Substance: LAMOTRIGINE
     Dates: start: 20201105, end: 20201113
  15. LAMOTRIGIN [Concomitant]
     Active Substance: LAMOTRIGINE
     Dates: start: 20201125, end: 20201209
  16. MIRTAZAPIN [Concomitant]
     Active Substance: MIRTAZAPINE
  17. RISPERDAL [Suspect]
     Active Substance: RISPERIDONE
     Route: 065
     Dates: start: 20201107, end: 20201112
  18. TEMESTA [LORAZEPAM] [Concomitant]
     Active Substance: LORAZEPAM
     Dates: start: 20201215

REACTIONS (1)
  - Ventricular extrasystoles [Recovered/Resolved]

NARRATIVE: CASE EVENT DATE: 20201112
